FAERS Safety Report 6420530-0 (Version None)
Quarter: 2009Q4

REPORT INFORMATION
  Report Type: 
  Country: None (occurrence: None)
  Receive Date: 20091027
  Receipt Date: 20091026
  Transmission Date: 20100525
  Serious: Yes (Hospitalization)
  Sender: FDA-Public Use
  Company Number: GRT 2009-13605

PATIENT
  Sex: Male

DRUGS (3)
  1. LIDOCAINE [Suspect]
     Indication: PAIN
     Dosage: UNKNOWN, TOPICAL
     Route: 061
     Dates: start: 20090930
  2. BUPRENORPHINE [Suspect]
     Indication: PAIN
     Dosage: UNKNOWN, TRANSDERMAL
     Route: 062
     Dates: start: 20090930
  3. METOPROLOL SUCCINATE [Suspect]
     Indication: CARDIAC DISORDER
     Dosage: UNKNOWN, ORAL
     Route: 048

REACTIONS (3)
  - BRADYCARDIA [None]
  - DRUG INTERACTION [None]
  - NAUSEA [None]
